FAERS Safety Report 9688511 (Version 1)
Quarter: 2013Q4

REPORT INFORMATION
  Report Type: Spontaneous
  Country: IT (occurrence: IT)
  Receive Date: 20131114
  Receipt Date: 20131114
  Transmission Date: 20140711
  Serious: Yes (Hospitalization)
  Sender: FDA-Public Use
  Company Number: IT-JNJFOC-20131104493

PATIENT
  Age: 22 Year
  Sex: Female

DRUGS (1)
  1. INVEGA [Suspect]
     Indication: PRODUCT USED FOR UNKNOWN INDICATION
     Dosage: 7 TABLETS OF OROS PALIPERIDONE 3 MG
     Route: 048
     Dates: start: 20130512, end: 20130512

REACTIONS (3)
  - Psychomotor hyperactivity [Recovering/Resolving]
  - Toxicity to various agents [Unknown]
  - Dyspepsia [Unknown]
